FAERS Safety Report 24202179 (Version 1)
Quarter: 2024Q3

REPORT INFORMATION
  Report Type: Spontaneous
  Country: RO (occurrence: RO)
  Receive Date: 20240812
  Receipt Date: 20240812
  Transmission Date: 20241016
  Serious: Yes (Other)
  Sender: INCYTE
  Company Number: RO-002147023-NVSC2024RO159995

PATIENT

DRUGS (1)
  1. RUXOLITINIB [Suspect]
     Active Substance: RUXOLITINIB
     Indication: Graft versus host disease
     Dosage: 5 MG, BID
     Route: 048

REACTIONS (2)
  - Breast neoplasm [Unknown]
  - Acute lymphocytic leukaemia [Unknown]
